FAERS Safety Report 21260424 (Version 2)
Quarter: 2022Q4

REPORT INFORMATION
  Report Type: Spontaneous
  Country: US (occurrence: US)
  Receive Date: 20220826
  Receipt Date: 20221014
  Transmission Date: 20230112
  Serious: No
  Sender: FDA-Public Use
  Company Number: US-INCYTE CORPORATION-2022IN008023

PATIENT

DRUGS (2)
  1. JAKAFI [Suspect]
     Active Substance: RUXOLITINIB
     Indication: Myelofibrosis
     Dosage: 5MG BD FOR 4 DAYS AND 10MG BD FOR 3 DAYS
     Route: 048
  2. PACRITINIB [Concomitant]
     Active Substance: PACRITINIB
     Indication: Product used for unknown indication
     Route: 065

REACTIONS (7)
  - Chills [Unknown]
  - Pain [Unknown]
  - Decreased activity [Unknown]
  - Back disorder [Unknown]
  - Fatigue [Not Recovered/Not Resolved]
  - Obesity [Unknown]
  - Splenomegaly [Unknown]
